FAERS Safety Report 18413710 (Version 1)
Quarter: 2020Q4

REPORT INFORMATION
  Report Type: Spontaneous
  Country: GB (occurrence: GB)
  Receive Date: 20201022
  Receipt Date: 20201022
  Transmission Date: 20210114
  Serious: Yes (Other)
  Sender: FDA-Public Use
  Company Number: GB-TEVA-2020-GB-1840260

PATIENT
  Age: 62 Year
  Sex: Female
  Weight: 93.6 kg

DRUGS (12)
  1. PROCHLORPERAZINE. [Concomitant]
     Active Substance: PROCHLORPERAZINE
  2. RANITIDINE. [Concomitant]
     Active Substance: RANITIDINE
  3. HYPROMELLOSE [Concomitant]
     Active Substance: HYPROMELLOSES
  4. FEXOFENADINE [Concomitant]
     Active Substance: FEXOFENADINE HYDROCHLORIDE
  5. CARBAMAZEPINE. [Suspect]
     Active Substance: CARBAMAZEPINE
     Indication: DEPRESSED MOOD
     Dosage: 100 MG
     Route: 048
     Dates: start: 20200821, end: 20200913
  6. GABAPENTIN. [Concomitant]
     Active Substance: GABAPENTIN
  7. DICLOFENAC [Concomitant]
     Active Substance: DICLOFENAC
  8. SERTRALINE [Concomitant]
     Active Substance: SERTRALINE HYDROCHLORIDE
  9. HYOSCINE BUTYLBROMIDE [Concomitant]
     Active Substance: BUTYLSCOPOLAMINE BROMIDE
  10. COLECALCIFEROL [Concomitant]
     Active Substance: CHOLECALCIFEROL
  11. ALMOTRIPTAN. [Concomitant]
     Active Substance: ALMOTRIPTAN
  12. LIDOCAINE. [Concomitant]
     Active Substance: LIDOCAINE

REACTIONS (3)
  - Epistaxis [Recovered/Resolved]
  - Rash pruritic [Recovering/Resolving]
  - Vasculitis [Recovering/Resolving]

NARRATIVE: CASE EVENT DATE: 20200908
